FAERS Safety Report 17212652 (Version 1)
Quarter: 2019Q4

REPORT INFORMATION
  Report Type: Other
  Country: US (occurrence: US)
  Receive Date: 20191230
  Receipt Date: 20191230
  Transmission Date: 20200122
  Serious: Yes (Life-Threatening, Hospitalization, Other)
  Sender: FDA-Public Use
  Company Number: US-DEXPHARM-20191170

PATIENT
  Age: 37 Year
  Sex: Male
  Weight: 131.5 kg

DRUGS (3)
  1. VENLAFAXINE [Suspect]
     Active Substance: VENLAFAXINE HYDROCHLORIDE
     Dosage: 150 MG TWICE DAILY FOR 4 YEARS
  2. VENLAFAXINE [Suspect]
     Active Substance: VENLAFAXINE HYDROCHLORIDE
  3. BUSPIRONE [Concomitant]
     Active Substance: BUSPIRONE HYDROCHLORIDE
     Dosage: 15 MG TWICE DAILY

REACTIONS (3)
  - Interstitial lung disease [Recovered/Resolved]
  - Toxicity to various agents [Recovered/Resolved]
  - Cardiac failure [Recovered/Resolved]
